FAERS Safety Report 16633671 (Version 2)
Quarter: 2019Q3

REPORT INFORMATION
  Report Type: Report from Study
  Country: US (occurrence: US)
  Receive Date: 20190725
  Receipt Date: 20190821
  Transmission Date: 20191004
  Serious: Yes (Other)
  Sender: FDA-Public Use
  Company Number: PHEH2019US030952

PATIENT
  Age: 58 Year
  Sex: Female

DRUGS (1)
  1. COSENTYX [Suspect]
     Active Substance: SECUKINUMAB
     Indication: PSORIASIS
     Dosage: 300 MG, UNK
     Route: 058
     Dates: start: 20190408, end: 20190606

REACTIONS (15)
  - Dyspnoea [Recovering/Resolving]
  - Feeling abnormal [Unknown]
  - Sinus congestion [Unknown]
  - Secretion discharge [Recovering/Resolving]
  - Oropharyngeal discomfort [Unknown]
  - Oral herpes [Recovering/Resolving]
  - Dysphagia [Recovering/Resolving]
  - Taste disorder [Recovering/Resolving]
  - Malaise [Recovering/Resolving]
  - Sinusitis [Recovering/Resolving]
  - Fungal infection [Unknown]
  - Oesophageal disorder [Recovering/Resolving]
  - Oropharyngeal pain [Recovering/Resolving]
  - Hypersensitivity [Unknown]
  - Gastrooesophageal reflux disease [Recovering/Resolving]

NARRATIVE: CASE EVENT DATE: 2019
